APPROVED DRUG PRODUCT: SINCALIDE
Active Ingredient: SINCALIDE
Strength: 0.005MG/VIAL
Dosage Form/Route: POWDER;INTRAVENOUS
Application: N210850 | Product #001 | TE Code: AP
Applicant: MAIA PHARMACEUTICALS INC
Approved: Nov 22, 2022 | RLD: Yes | RS: Yes | Type: RX

PATENTS:
Patent 11737983 | Expires: Apr 20, 2038
Patent 11737983 | Expires: Apr 20, 2038
Patent 11318100 | Expires: Apr 20, 2038
Patent 11318100 | Expires: Apr 20, 2038
Patent 11318100 | Expires: Apr 20, 2038
Patent 11318100 | Expires: Apr 20, 2038
Patent 11110063 | Expires: Apr 20, 2038
Patent 11110063 | Expires: Apr 20, 2038
Patent 11110063 | Expires: Apr 20, 2038